FAERS Safety Report 5090761-3 (Version None)
Quarter: 2006Q3

REPORT INFORMATION
  Report Type: 
  Country: None (occurrence: None)
  Receive Date: 20060823
  Receipt Date: 20060808
  Transmission Date: 20061208
  Serious: Yes (Death)
  Sender: FDA-Public Use
  Company Number: AU200608002217

PATIENT
  Age: 58 Year
  Sex: Male

DRUGS (3)
  1. OLANZAPINE [Suspect]
     Indication: HYPOMANIA
     Dosage: 15 MG
     Dates: start: 20060801
  2. VALPROATE SODIUM [Concomitant]
  3. LITHIUM (LITHIUM) [Concomitant]

REACTIONS (2)
  - CARDIAC ARREST [None]
  - TREATMENT NONCOMPLIANCE [None]
